FAERS Safety Report 5908493-5 (Version None)
Quarter: 2008Q4

REPORT INFORMATION
  Report Type: 
  Country: None (occurrence: None)
  Receive Date: 20081006
  Receipt Date: 20080812
  Transmission Date: 20090506
  Serious: No
  Sender: FDA-Public Use
  Company Number: US-BAYER-200831206NA

PATIENT
  Age: 21 Year
  Sex: Female

DRUGS (1)
  1. MIRENA [Suspect]
     Indication: CONTRACEPTION
     Route: 015
     Dates: start: 20080101

REACTIONS (5)
  - ABDOMINAL PAIN [None]
  - BACK PAIN [None]
  - IUCD COMPLICATION [None]
  - MENORRHAGIA [None]
  - MENSTRUATION IRREGULAR [None]
